FAERS Safety Report 25484916 (Version 1)
Quarter: 2025Q2

REPORT INFORMATION
  Report Type: Spontaneous
  Country: US (occurrence: US)
  Receive Date: 20250626
  Receipt Date: 20250626
  Transmission Date: 20250716
  Serious: No
  Sender: SANOFI AVENTIS
  Company Number: US-SA-2025SA178425

PATIENT
  Sex: Male

DRUGS (20)
  1. DUPIXENT [Suspect]
     Active Substance: DUPILUMAB
     Indication: Hypothyroidism
     Dosage: 300 MG, QOW
     Route: 058
  2. BREZTRI [Concomitant]
     Active Substance: BUDESONIDE\FORMOTEROL\GLYCOPYRROLATE
  3. FLUNISOLIDE [Concomitant]
     Active Substance: FLUNISOLIDE
  4. PRALUENT [Concomitant]
     Active Substance: ALIROCUMAB
  5. TAMSULOSIN [Concomitant]
     Active Substance: TAMSULOSIN
  6. ALBUTEROL [Concomitant]
     Active Substance: ALBUTEROL
  7. AMBIEN [Concomitant]
     Active Substance: ZOLPIDEM TARTRATE
  8. ASPIRIN [Concomitant]
     Active Substance: ASPIRIN
  9. ERGOCALCIFEROL [Concomitant]
     Active Substance: ERGOCALCIFEROL
  10. FLONASE [Concomitant]
     Active Substance: FLUTICASONE PROPIONATE
  11. HYDROCORTISONE [Concomitant]
     Active Substance: HYDROCORTISONE
  12. MAGNESIUM [Concomitant]
     Active Substance: MAGNESIUM
  13. MELOXICAM [Concomitant]
     Active Substance: MELOXICAM
  14. METOPROLOL [Concomitant]
     Active Substance: METOPROLOL
  15. MONTELUKAST [Concomitant]
     Active Substance: MONTELUKAST
  16. OMEPRAZOLE [Concomitant]
     Active Substance: OMEPRAZOLE
  17. REPATHA [Concomitant]
     Active Substance: EVOLOCUMAB
  18. SYNTHROID [Concomitant]
     Active Substance: LEVOTHYROXINE SODIUM
  19. TELMISARTAN [Concomitant]
     Active Substance: TELMISARTAN
  20. ZYRTEC [Concomitant]
     Active Substance: CETIRIZINE HYDROCHLORIDE

REACTIONS (2)
  - Blood sodium decreased [Unknown]
  - Product use in unapproved indication [Unknown]
